FAERS Safety Report 24869826 (Version 1)
Quarter: 2025Q1

REPORT INFORMATION
  Report Type: Spontaneous
  Country: US (occurrence: None)
  Receive Date: 20250120
  Receipt Date: 20250120
  Transmission Date: 20250409
  Serious: No
  Sender: FDA-CTU
  Company Number: None

PATIENT
  Age: 53 Year
  Weight: 55.35 kg

DRUGS (6)
  1. LUBIPROSTONE [Suspect]
     Active Substance: LUBIPROSTONE
     Indication: Irritable bowel syndrome
     Dosage: OTHER QUANTITY : 1 CAPSULE(S);?FREQUENCY : DAILY;?
     Route: 048
     Dates: end: 20250119
  2. SINGULAIR [Concomitant]
     Active Substance: MONTELUKAST SODIUM
  3. ZYRTEC [Concomitant]
     Active Substance: CETIRIZINE HYDROCHLORIDE
  4. MOBIC [Concomitant]
     Active Substance: MELOXICAM
  5. MULTI-VITAMIN [Concomitant]
     Active Substance: .ALPHA.-TOCOPHEROL ACETATE, DL-\ASCORBIC ACID\CYANOCOBALAMIN\FLUORIDE ION\FOLIC ACID\NIACIN\PYRIDOXI
  6. vegan collagen [Concomitant]

REACTIONS (4)
  - Nausea [None]
  - Abdominal distension [None]
  - Abdominal discomfort [None]
  - Product formulation issue [None]

NARRATIVE: CASE EVENT DATE: 20250118
